FAERS Safety Report 7677535-1 (Version None)
Quarter: 2011Q3

REPORT INFORMATION
  Report Type: 
  Country: None (occurrence: None)
  Receive Date: 20110811
  Receipt Date: 20110728
  Transmission Date: 20111222
  Serious: Yes (Hospitalization, Other)
  Sender: FDA-Public Use
  Company Number: US-UCBSA-038443

PATIENT
  Sex: Female

DRUGS (19)
  1. XYREM [Suspect]
     Dosage: UP-TITRATED DOSE
     Route: 048
  2. VENLAFAXINE HYDROCHLORIDE [Concomitant]
  3. COENZYME Q10 [Concomitant]
  4. XYREM [Suspect]
     Indication: FIBROMYALGIA
     Route: 048
     Dates: start: 20100610
  5. VERAPAMIL [Concomitant]
  6. XYREM [Suspect]
     Dosage: 3.75 GM FOR THE FIRST NIGHTLY DOSE AND 2.25 GM SECOND NIGHTLY DOSE
     Route: 048
     Dates: start: 20110405, end: 20110706
  7. FISH OIL [Concomitant]
  8. BISACODYL [Concomitant]
  9. AMPHETAMINE DEXTROAMPHETAMINE MIXED SALTS [Concomitant]
  10. DEXTROAMPHETAMINE MIXED SALTS [Concomitant]
  11. LEVETIRACETAM [Suspect]
  12. XYREM [Suspect]
     Indication: SLEEP APNOEA SYNDROME
     Route: 048
     Dates: start: 20100610
  13. XYREM [Suspect]
     Dosage: UP-TITRATED DOSE
     Route: 048
  14. CELECOXIB [Concomitant]
  15. XYREM [Suspect]
     Dosage: 3.75 GM FOR THE FIRST NIGHTLY DOSE AND 2.25 GM SECOND NIGHTLY DOSE
     Route: 048
     Dates: start: 20110405, end: 20110706
  16. XYREM [Suspect]
     Dosage: NIGHTLY
     Route: 048
     Dates: start: 20110707
  17. XYREM [Suspect]
     Dosage: NIGHTLY
     Route: 048
     Dates: start: 20110707
  18. KLONOPIN [Suspect]
  19. GABAPENTIN [Suspect]

REACTIONS (8)
  - DECREASED APPETITE [None]
  - FATIGUE [None]
  - HYPOPHAGIA [None]
  - WEIGHT DECREASED [None]
  - FEELING ABNORMAL [None]
  - CHOLELITHIASIS [None]
  - GLUCOSE TOLERANCE IMPAIRED [None]
  - BLOOD HOMOCYSTEINE INCREASED [None]
